FAERS Safety Report 17396696 (Version 1)
Quarter: 2020Q1

REPORT INFORMATION
  Report Type: Spontaneous
  Country: US (occurrence: US)
  Receive Date: 20200210
  Receipt Date: 20200210
  Transmission Date: 20200409
  Serious: Yes (Other)
  Sender: FDA-Public Use
  Company Number: US-PFIZER INC-2020050794

PATIENT
  Age: 49 Year
  Sex: Female
  Weight: 136.5 kg

DRUGS (3)
  1. LEVOTHYROXINE SODIUM. [Suspect]
     Active Substance: LEVOTHYROXINE SODIUM
     Indication: ADRENOCORTICAL INSUFFICIENCY ACUTE
     Dosage: 0.112 MG, DAILY
     Dates: start: 200604
  2. FLUDROCORTISONE ACETATE. [Suspect]
     Active Substance: FLUDROCORTISONE ACETATE
     Indication: ADRENOCORTICAL INSUFFICIENCY ACUTE
     Dosage: 0.1 MG, DAILY
     Dates: start: 200604
  3. HYDROCORTISONE. [Suspect]
     Active Substance: HYDROCORTISONE
     Indication: ADRENOCORTICAL INSUFFICIENCY ACUTE
     Dosage: 25 MG, DAILY
     Dates: start: 200604

REACTIONS (3)
  - Optic nerve compression [Unknown]
  - Disease recurrence [Unknown]
  - Pituitary tumour benign [Unknown]

NARRATIVE: CASE EVENT DATE: 2010
